FAERS Safety Report 5459881-5 (Version None)
Quarter: 2007Q3

REPORT INFORMATION
  Report Type: 
  Country: None (occurrence: None)
  Receive Date: 20070919
  Receipt Date: 20070917
  Transmission Date: 20080115
  Serious: Yes (Life-Threatening, Hospitalization)
  Sender: FDA-Public Use
  Company Number: PHEH2007US10405

PATIENT
  Age: 58 Year
  Sex: Male
  Weight: 83.9 kg

DRUGS (4)
  1. ASPIRIN [Concomitant]
  2. TOPROL-XL [Concomitant]
  3. CLONAZEPAM [Concomitant]
     Indication: ANXIETY
     Dosage: 0.5 MG, QD
     Route: 048
  4. EXJADE [Suspect]
     Indication: IRON OVERLOAD
     Dosage: 1750MG, QD
     Route: 048
     Dates: start: 20070716, end: 20070720

REACTIONS (20)
  - ALANINE AMINOTRANSFERASE INCREASED [None]
  - AMMONIA INCREASED [None]
  - ASPARTATE AMINOTRANSFERASE INCREASED [None]
  - BLOOD BILIRUBIN INCREASED [None]
  - BLOOD CALCIUM DECREASED [None]
  - BLOOD CREATININE INCREASED [None]
  - BLOOD GLUCOSE INCREASED [None]
  - BLOOD POTASSIUM DECREASED [None]
  - BLOOD SODIUM INCREASED [None]
  - BLOOD UREA INCREASED [None]
  - CEREBRAL DISORDER [None]
  - COMA [None]
  - ELECTROENCEPHALOGRAM ABNORMAL [None]
  - HEPATIC ENCEPHALOPATHY [None]
  - HEPATIC FAILURE [None]
  - MENTAL STATUS CHANGES [None]
  - NAUSEA [None]
  - PLATELET COUNT DECREASED [None]
  - VOMITING [None]
  - WHITE BLOOD CELL COUNT INCREASED [None]
